FAERS Safety Report 9717695 (Version 1)
Quarter: 2013Q4

REPORT INFORMATION
  Report Type: Spontaneous
  Country: GB (occurrence: GB)
  Receive Date: 20131127
  Receipt Date: 20131127
  Transmission Date: 20140711
  Serious: Yes (Disabling, Other)
  Sender: FDA-Public Use
  Company Number: GB-TEVA-445716ISR

PATIENT
  Age: 47 Year
  Sex: Male

DRUGS (5)
  1. SERTRALINE [Suspect]
     Route: 048
  2. THYROXINE [Interacting]
     Route: 048
  3. FOLIC ACID [Concomitant]
  4. NAPROXEN [Concomitant]
  5. LANSOPRAZOLE [Concomitant]

REACTIONS (1)
  - Inhibitory drug interaction [Unknown]
